FAERS Safety Report 4443332-3 (Version None)
Quarter: 2004Q3

REPORT INFORMATION
  Report Type: 
  Country: None (occurrence: None)
  Receive Date: 20040907
  Receipt Date: 20040907
  Transmission Date: 20050211
  Serious: Yes (Hospitalization)
  Sender: FDA-Public Use
  Company Number: None

PATIENT
  Age: 80 Year
  Sex: Male
  Weight: 82.2 kg

DRUGS (1)
  1. PHENERGAN [Suspect]

REACTIONS (3)
  - HYPERTENSION [None]
  - MENTAL STATUS CHANGES [None]
  - SOMNOLENCE [None]
